FAERS Safety Report 4698842-0 (Version None)
Quarter: 2005Q3

REPORT INFORMATION
  Report Type: 
  Country: None (occurrence: None)
  Receive Date: 20050622
  Receipt Date: 20050608
  Transmission Date: 20060218
  Serious: Yes (Hospitalization)
  Sender: FDA-Public Use
  Company Number: WAES 0506USA01903

PATIENT
  Age: 60 Year
  Sex: Female
  Weight: 93.8946 kg

DRUGS (15)
  1. VIOXX [Suspect]
     Indication: OSTEOARTHRITIS
     Dosage: 25 MG/DAILY/PO
     Route: 048
     Dates: start: 20000406, end: 20040726
  2. PREVACID [Concomitant]
  3. PRILOSEC [Concomitant]
  4. SINGULAIR [Concomitant]
  5. TYLENOL [Concomitant]
  6. ASCORBIC ACID [Concomitant]
  7. ASPIRIN [Concomitant]
  8. ATENOLOL [Concomitant]
  9. BLINDED THERAPY [Concomitant]
  10. CALCIUM (UNSPECIFIED) [Concomitant]
  11. FISH OIL (UNSPECIFIED) [Concomitant]
  12. LECITHIN [Concomitant]
  13. VITAMIN D (UNSPECIFIED) [Concomitant]
  14. VITAMIN E [Concomitant]
  15. VITAMINS [Concomitant]

REACTIONS (1)
  - DIVERTICULITIS [None]
